FAERS Safety Report 7973886-1 (Version None)
Quarter: 2011Q4

REPORT INFORMATION
  Report Type: 
  Country: None (occurrence: None)
  Receive Date: 20111213
  Receipt Date: 20111207
  Transmission Date: 20120403
  Serious: Yes (Death)
  Sender: FDA-Public Use
  Company Number: US-ROCHE-1020282

PATIENT
  Sex: Female
  Weight: 103.86 kg

DRUGS (14)
  1. AVASTIN [Suspect]
     Route: 042
     Dates: start: 20110909, end: 20111018
  2. FOLIC ACID [Concomitant]
  3. THIAMINE HYDROCHLORIDE [Concomitant]
  4. PANTHENOL [Concomitant]
  5. CARBOPLATIN [Suspect]
     Indication: NON-SMALL CELL LUNG CANCER
     Dosage: 6 AUC
     Route: 042
     Dates: start: 20110606, end: 20110815
  6. MULTI-VITAMINS [Concomitant]
  7. NICOTINAMIDE [Concomitant]
  8. RETINOL [Concomitant]
  9. ASCORBIC ACID [Concomitant]
  10. ONDANSETRON HYDROCHLORIDE [Concomitant]
  11. ERGOCALCIFEROL [Concomitant]
  12. RIBOFLAVIN [Concomitant]
  13. AVASTIN [Suspect]
     Indication: NON-SMALL CELL LUNG CANCER
     Route: 042
     Dates: start: 20110606, end: 20110815
  14. PACLITAXEL [Suspect]
     Indication: NON-SMALL CELL LUNG CANCER
     Dosage: CYCLE
     Route: 042
     Dates: start: 20110606, end: 20110815

REACTIONS (2)
  - LUNG NEOPLASM MALIGNANT [None]
  - CARDIAC FAILURE CONGESTIVE [None]
